FAERS Safety Report 9308149 (Version 2)
Quarter: 2013Q2

REPORT INFORMATION
  Report Type: Spontaneous
  Country: JP (occurrence: JP)
  Receive Date: 20130524
  Receipt Date: 20130524
  Transmission Date: 20140414
  Serious: Yes (Other)
  Sender: FDA-Public Use
  Company Number: JP-PFIZER INC-2013142919

PATIENT
  Age: 79 Year
  Sex: Female

DRUGS (4)
  1. ALDACTONE A [Suspect]
     Dosage: UNK
     Route: 048
  2. THYRADIN [Suspect]
     Dosage: UNK
     Route: 048
  3. BLOPRESS [Suspect]
     Dosage: UNK
     Route: 048
  4. BOUIOUGITOU [Suspect]
     Dosage: UNK
     Route: 048

REACTIONS (1)
  - Thrombocytopenia [Unknown]
